FAERS Safety Report 12706002 (Version 2)
Quarter: 2016Q3

REPORT INFORMATION
  Report Type: Spontaneous
  Country: US (occurrence: US)
  Receive Date: 20160901
  Receipt Date: 20160901
  Transmission Date: 20161109
  Serious: No
  Sender: FDA-Public Use
  Company Number: US-JAZZ-2016-US-007857

PATIENT
  Sex: Male

DRUGS (39)
  1. DEXILANT [Concomitant]
     Active Substance: DEXLANSOPRAZOLE
  2. KLONOPIN [Concomitant]
     Active Substance: CLONAZEPAM
  3. XOPENEX [Concomitant]
     Active Substance: LEVALBUTEROL HYDROCHLORIDE
  4. PRAMIPEXOL [Concomitant]
     Active Substance: PRAMIPEXOLE
  5. XYREM [Suspect]
     Active Substance: SODIUM OXYBATE
     Dosage: DOSE ADJUSTMENTS
     Route: 048
  6. XYREM [Suspect]
     Active Substance: SODIUM OXYBATE
     Dosage: 3 G, BID
     Route: 048
     Dates: start: 201211
  7. METOPROLOL SUCCINATE. [Concomitant]
     Active Substance: METOPROLOL SUCCINATE
  8. CETIRIZINE HCL [Concomitant]
     Active Substance: CETIRIZINE HYDROCHLORIDE
  9. FEXOFENADINE [Concomitant]
     Active Substance: FEXOFENADINE\FEXOFENADINE HYDROCHLORIDE
  10. JALYN [Concomitant]
     Active Substance: DUTASTERIDE\TAMSULOSIN HYDROCHLORIDE
  11. MIRAPEX [Concomitant]
     Active Substance: PRAMIPEXOLE DIHYDROCHLORIDE
  12. PRONUTRIENTS PROBIOTIC [Concomitant]
  13. SYSTANE BALANCE [Concomitant]
     Active Substance: PROPYLENE GLYCOL
  14. VITAMIN E [Concomitant]
     Active Substance: .ALPHA.-TOCOPHEROL
  15. ASPIRIN. [Concomitant]
     Active Substance: ASPIRIN
  16. MELOXICAM. [Concomitant]
     Active Substance: MELOXICAM
  17. VICODIN [Concomitant]
     Active Substance: ACETAMINOPHEN\HYDROCODONE BITARTRATE
  18. METHOCARBAMOL. [Concomitant]
     Active Substance: METHOCARBAMOL
  19. ENULOSE [Concomitant]
     Active Substance: LACTULOSE
  20. XYREM [Suspect]
     Active Substance: SODIUM OXYBATE
     Indication: NARCOLEPSY
     Dosage: 2.25 G, BID
     Route: 048
     Dates: start: 201008, end: 201009
  21. IPRATROPIUM [Concomitant]
     Active Substance: IPRATROPIUM
  22. PROTONIX [Concomitant]
     Active Substance: PANTOPRAZOLE SODIUM
  23. ROZEREM [Concomitant]
     Active Substance: RAMELTEON
  24. VITAMIN B COMPLEX [Concomitant]
     Active Substance: CYANOCOBALAMIN\DEXPANTHENOL\NIACINAMIDE\PYRIDOXINE HYDROCHLORIDE\RIBOFLAVIN 5^-PHOSPHATE SODIUM\THIAMINE HYDROCHLORIDE\VITAMIN B COMPLEX
  25. NAPROXEN. [Concomitant]
     Active Substance: NAPROXEN
  26. TRAMADOL HCL [Concomitant]
     Active Substance: TRAMADOL HYDROCHLORIDE
  27. COD LIVER OIL [Concomitant]
     Active Substance: COD LIVER OIL
  28. VITAMIN B6 [Concomitant]
     Active Substance: PYRIDOXINE HYDROCHLORIDE
  29. ALLERGY [Concomitant]
     Active Substance: UNSPECIFIED INGREDIENT
  30. MECLIZINE [Concomitant]
     Active Substance: MECLIZINE HYDROCHLORIDE
  31. CALCIUM [Concomitant]
     Active Substance: CALCIUM
  32. CLOTRIMAZOLE AF [Concomitant]
  33. MULTIVITAMIN [Concomitant]
     Active Substance: VITAMINS
  34. TYLENOL EXTRA STRENGTH [Concomitant]
     Active Substance: ACETAMINOPHEN
  35. ZINC GLUCONATE [Concomitant]
     Active Substance: ZINC GLUCONATE
  36. IBUPROFEN. [Concomitant]
     Active Substance: IBUPROFEN
  37. PROAIR HFA [Concomitant]
     Active Substance: ALBUTEROL SULFATE
  38. VITAMIN C [Concomitant]
     Active Substance: ASCORBIC ACID
  39. VITAMIN D3 [Concomitant]
     Active Substance: CHOLECALCIFEROL

REACTIONS (1)
  - Musculoskeletal pain [Not Recovered/Not Resolved]
